FAERS Safety Report 23663433 (Version 1)
Quarter: 2024Q1

REPORT INFORMATION
  Report Type: Spontaneous
  Country: US (occurrence: None)
  Receive Date: 20240321
  Receipt Date: 20240321
  Transmission Date: 20240409
  Serious: Yes (Life-Threatening, Hospitalization, Disabling)
  Sender: FDA-Public Use
  Company Number: None

PATIENT
  Age: 64 Year
  Sex: Male
  Weight: 100 kg

DRUGS (1)
  1. TENECTEPLASE [Suspect]
     Active Substance: TENECTEPLASE
     Indication: Ischaemic stroke
     Dosage: OTHER FREQUENCY : ONCE;?
     Route: 042
     Dates: start: 20231223

REACTIONS (5)
  - Off label use [None]
  - Basal ganglia haemorrhage [None]
  - Intraventricular haemorrhage [None]
  - Incorrect dose administered [None]
  - Product preparation issue [None]

NARRATIVE: CASE EVENT DATE: 20231223
